FAERS Safety Report 7360559-1 (Version None)
Quarter: 2011Q1

REPORT INFORMATION
  Report Type: 
  Country: None (occurrence: None)
  Receive Date: 20110309
  Receipt Date: 20110222
  Transmission Date: 20110831
  Serious: Yes (Disabling, Other)
  Sender: FDA-Public Use
  Company Number: AUR-APL-2011-00692

PATIENT
  Age: 70 Year
  Sex: Male

DRUGS (6)
  1. RAMIPRIL [Concomitant]
  2. AMLODIPINE [Concomitant]
  3. GLYCERYL TRINITRATE (GTN) [Concomitant]
  4. NICORANDIL [Concomitant]
  5. SIMVASTATIN [Suspect]
     Dates: start: 20081029
  6. VERAPAMIL HYDROCHLORIDE [Concomitant]

REACTIONS (2)
  - DYSPNOEA [None]
  - PULMONARY FIBROSIS [None]
